FAERS Safety Report 25024743 (Version 2)
Quarter: 2025Q2

REPORT INFORMATION
  Report Type: Spontaneous
  Country: CN (occurrence: CN)
  Receive Date: 20250228
  Receipt Date: 20250516
  Transmission Date: 20250717
  Serious: Yes (Death, Other)
  Sender: INNOVIVA
  Company Number: CN-INNOVIVA SPECIALTY THERAPEUTICS-2025-ISTX-000015

PATIENT

DRUGS (1)
  1. XACDURO [Suspect]
     Active Substance: DURLOBACTAM SODIUM\SULBACTAM SODIUM
     Indication: Acinetobacter infection
     Dosage: 1G/1G (2G), Q6HR
     Route: 042
     Dates: start: 20250212, end: 20250216

REACTIONS (1)
  - Gastric haemorrhage [Fatal]

NARRATIVE: CASE EVENT DATE: 20250216
